FAERS Safety Report 11216693 (Version 3)
Quarter: 2016Q3

REPORT INFORMATION
  Report Type: Spontaneous
  Country: US (occurrence: US)
  Receive Date: 20150624
  Receipt Date: 20160926
  Transmission Date: 20161109
  Serious: Yes (Death, Hospitalization)
  Sender: FDA-Public Use
  Company Number: US-MYLANLABS-2015M1020951

PATIENT

DRUGS (2)
  1. VALPROIC ACID. [Concomitant]
     Active Substance: VALPROIC ACID
     Indication: PRODUCT USED FOR UNKNOWN INDICATION
     Route: 048
  2. CARBAMAZEPINE. [Suspect]
     Active Substance: CARBAMAZEPINE
     Indication: PRODUCT USED FOR UNKNOWN INDICATION
     Route: 048

REACTIONS (9)
  - Hypotension [Fatal]
  - Unresponsive to stimuli [Fatal]
  - Haemodynamic instability [Fatal]
  - Compartment syndrome [Fatal]
  - Bundle branch block right [Fatal]
  - Brain injury [Fatal]
  - Overdose [Fatal]
  - Acidosis [Fatal]
  - Cardiac arrest [Fatal]
